FAERS Safety Report 9507380 (Version 1)
Quarter: 2013Q3

REPORT INFORMATION
  Report Type: Spontaneous
  Country: US (occurrence: None)
  Receive Date: 20130906
  Receipt Date: 20130906
  Transmission Date: 20140515
  Serious: Yes (Death)
  Sender: FDA-Public Use
  Company Number: None

PATIENT
  Age: 51 Year
  Sex: Female
  Weight: 127 kg

DRUGS (13)
  1. ECULIZUMAB [Suspect]
     Indication: KIDNEY TRANSPLANT REJECTION
     Dosage: 300 MG VIAL; 2-4 VIALS PRN/AS NEEDED INTRAVENOUS
     Route: 042
     Dates: start: 20130705, end: 20130823
  2. THYMOGLOBULIN [Concomitant]
  3. IVIG (GAMMAGARD LIQUID) [Concomitant]
  4. RITUXIMAB [Concomitant]
  5. TACROLIMUS [Concomitant]
  6. MYCOPHENOLATE MOFETIL [Concomitant]
  7. PREDNISONE [Concomitant]
  8. VALGANCICLOVIR [Concomitant]
  9. TMP/SMX SS [Concomitant]
  10. NYSTATIN [Concomitant]
  11. PENICILLIN V-K [Concomitant]
  12. ASA [Concomitant]
  13. SODIUM BICARBONATE [Concomitant]

REACTIONS (1)
  - Death [None]
